FAERS Safety Report 8902808 (Version 1)
Quarter: 2012Q4

REPORT INFORMATION
  Report Type: 
  Country: US (occurrence: US)
  Receive Date: 20121112
  Receipt Date: 20121112
  Transmission Date: 20130627
  Serious: Yes (Other)
  Sender: FDA-Public Use
  Company Number: US-PFIZER INC-2012247817

PATIENT
  Age: 79 Year
  Sex: Female
  Weight: 60.32 kg

DRUGS (5)
  1. CALAN [Suspect]
     Indication: BLOOD PRESSURE ABNORMAL
     Dosage: 120 mg, 3x/day
     Route: 048
     Dates: end: 201211
  2. ACETYLSALICYLIC ACID [Suspect]
     Indication: ANTICOAGULANT THERAPY
     Dosage: 325 mg, daily
     Route: 048
  3. VASOTEC [Concomitant]
     Indication: HEART DISORDER
     Dosage: 1.25 mg, daily
  4. SYNTHROID [Concomitant]
     Indication: THYROID DISORDER
     Dosage: 0.075 mg, daily
  5. TYLENOL [Concomitant]
     Indication: BLOOD PRESSURE ABNORMAL
     Dosage: 500 mg, as needed

REACTIONS (5)
  - Systemic lupus erythematosus [Unknown]
  - Dyspepsia [Not Recovered/Not Resolved]
  - Painful defaecation [Not Recovered/Not Resolved]
  - Amnesia [Unknown]
  - Product quality issue [Unknown]
